FAERS Safety Report 16135726 (Version 4)
Quarter: 2019Q3

REPORT INFORMATION
  Report Type: Spontaneous
  Country: US (occurrence: US)
  Receive Date: 20190329
  Receipt Date: 20190910
  Transmission Date: 20191004
  Serious: Yes (Hospitalization, Other)
  Sender: FDA-Public Use
  Company Number: US-PFIZER INC-2019133669

PATIENT
  Age: 61 Year
  Sex: Female
  Weight: 86 kg

DRUGS (1)
  1. CIPROFLOXACIN. [Suspect]
     Active Substance: CIPROFLOXACIN
     Indication: SINUSITIS
     Dosage: 500 MG, UNK (A TOTAL OF 3 PILLS)
     Dates: start: 20170928

REACTIONS (4)
  - Syncope [Unknown]
  - Malaise [Unknown]
  - Electrocardiogram QT interval abnormal [Not Recovered/Not Resolved]
  - Fall [Unknown]

NARRATIVE: CASE EVENT DATE: 20170930
